FAERS Safety Report 5396917-4 (Version None)
Quarter: 2007Q3

REPORT INFORMATION
  Report Type: 
  Country: None (occurrence: None)
  Receive Date: 20070725
  Receipt Date: 20070531
  Transmission Date: 20080115
  Serious: Yes (Hospitalization, Other)
  Sender: FDA-Public Use
  Company Number: US-PURDUE-USA_2007_0027713

PATIENT
  Sex: Male
  Weight: 89 kg

DRUGS (28)
  1. OXYCONTIN [Suspect]
     Indication: BACK PAIN
     Dosage: 10 MG, BID
     Dates: start: 19980915, end: 20010801
  2. PRAVACHOL [Concomitant]
  3. HYDROXYZINE [Concomitant]
  4. BUSPAR [Concomitant]
  5. MEBENDAZOLE [Concomitant]
  6. PREVACID [Concomitant]
  7. ENULOSE [Concomitant]
  8. SKELAXIN [Concomitant]
  9. CELEBREX [Concomitant]
  10. CYCLOBENZAPRINE HCL [Concomitant]
  11. OXYIR [Concomitant]
  12. ZOCOR [Concomitant]
  13. PROMETHAZINE [Concomitant]
  14. DIAZEPAM [Concomitant]
  15. AMBIEN [Concomitant]
  16. REMERON [Concomitant]
  17. LAMISIL [Concomitant]
  18. METHYLPREDNISOLONE [Concomitant]
  19. ETODOLAC [Concomitant]
  20. DIPHENHYDRAMINE HCL [Concomitant]
  21. CARISOPRODOL [Concomitant]
  22. DEPAKOTE [Concomitant]
  23. ZYRTEC [Concomitant]
  24. ROXICODONE [Concomitant]
  25. NORTRIPTYLINE HCL [Concomitant]
  26. PROVIGIL [Concomitant]
  27. SYNTHROID [Concomitant]
  28. LITHOBID [Concomitant]

REACTIONS (19)
  - ACTIVITIES OF DAILY LIVING IMPAIRED [None]
  - ANGER [None]
  - ANHEDONIA [None]
  - BRADYPHRENIA [None]
  - BREAKTHROUGH PAIN [None]
  - COGNITIVE DISORDER [None]
  - CONFUSIONAL STATE [None]
  - CONSTIPATION [None]
  - DECREASED APPETITE [None]
  - DEPRESSION SUICIDAL [None]
  - DRUG DEPENDENCE [None]
  - DRUG EFFECT DECREASED [None]
  - EMOTIONAL DISORDER [None]
  - MANIA [None]
  - MEMORY IMPAIRMENT [None]
  - NAUSEA [None]
  - SOCIAL PROBLEM [None]
  - SUICIDE ATTEMPT [None]
  - THINKING ABNORMAL [None]
